FAERS Safety Report 24354314 (Version 2)
Quarter: 2024Q3

REPORT INFORMATION
  Report Type: Spontaneous
  Country: US (occurrence: US)
  Receive Date: 20240923
  Receipt Date: 20240926
  Transmission Date: 20241017
  Serious: Yes (Hospitalization, Other)
  Sender: SANDOZ
  Company Number: US-002147023-NVSC2022US237157

PATIENT
  Sex: Female

DRUGS (2)
  1. OMNITROPE [Suspect]
     Active Substance: SOMATROPIN
     Indication: Diabetes mellitus
     Dosage: 0.6 MG, QD
     Route: 058
     Dates: start: 20150728
  2. OMNITROPE [Suspect]
     Active Substance: SOMATROPIN
     Dosage: 0.6 MG, QD
     Route: 058

REACTIONS (11)
  - Cardiac failure congestive [Unknown]
  - Myocardial infarction [Unknown]
  - Diabetes mellitus [Unknown]
  - Suicidal ideation [Unknown]
  - Fall [Unknown]
  - Mental disorder [Unknown]
  - Hypertension [Unknown]
  - Panic attack [Unknown]
  - Rash [Unknown]
  - Product physical issue [Unknown]
  - Product use in unapproved indication [Unknown]
